FAERS Safety Report 11443336 (Version 3)
Quarter: 2015Q4

REPORT INFORMATION
  Report Type: Spontaneous
  Country: US (occurrence: US)
  Receive Date: 20150901
  Receipt Date: 20151007
  Transmission Date: 20160304
  Serious: Yes (Hospitalization, Other)
  Sender: FDA-Public Use
  Company Number: US-009507513-1508USA011092

PATIENT
  Age: 51 Year
  Sex: Male

DRUGS (1)
  1. PROVENTIL [Suspect]
     Active Substance: ALBUTEROL
     Dosage: UNK
     Route: 055
     Dates: start: 201505

REACTIONS (9)
  - Dyspnoea [Unknown]
  - Decubitus ulcer [Unknown]
  - Abdominal pain [Unknown]
  - Gangrene [Unknown]
  - Cardiovascular disorder [Unknown]
  - Product quality issue [Unknown]
  - Drug dose omission [Unknown]
  - Skin ulcer [Unknown]
  - Skin lesion [Unknown]

NARRATIVE: CASE EVENT DATE: 2015
